FAERS Safety Report 13690651 (Version 1)
Quarter: 2017Q2

REPORT INFORMATION
  Report Type: Spontaneous
  Country: US (occurrence: US)
  Receive Date: 20170626
  Receipt Date: 20170626
  Transmission Date: 20170830
  Serious: No
  Sender: FDA-Public Use
  Company Number: US-GLAXOSMITHKLINE-US2017GSK096055

PATIENT
  Sex: Female

DRUGS (12)
  1. DRAMAMINE [Concomitant]
     Active Substance: DIMENHYDRINATE
  2. ADVAIR DISKUS [Suspect]
     Active Substance: FLUTICASONE PROPIONATE\SALMETEROL XINAFOATE
     Indication: ASTHMA
     Dosage: 1 PUFF(S), BID
     Route: 055
     Dates: start: 2007
  3. HIPREX [Concomitant]
     Active Substance: METHENAMINE HIPPURATE
  4. TOPROL XL [Concomitant]
     Active Substance: METOPROLOL SUCCINATE
  5. NASOCORT [Concomitant]
     Active Substance: BUDESONIDE
  6. DIAZEPAM. [Concomitant]
     Active Substance: DIAZEPAM
  7. TRAMADOL. [Concomitant]
     Active Substance: TRAMADOL
  8. ZANTAC [Concomitant]
     Active Substance: RANITIDINE HYDROCHLORIDE
  9. ALBUTEROL INHALER [Concomitant]
     Active Substance: ALBUTEROL
  10. ADVAIR HFA [Suspect]
     Active Substance: FLUTICASONE PROPIONATE\SALMETEROL XINAFOATE
     Indication: ASTHMA
     Dosage: UNK, SINGLE
     Route: 055
     Dates: start: 2015, end: 2015
  11. ADVAIR DISKUS [Suspect]
     Active Substance: FLUTICASONE PROPIONATE\SALMETEROL XINAFOATE
     Dosage: 1 PUFF(S), QD
     Route: 055
  12. ASPIRIN. [Concomitant]
     Active Substance: ASPIRIN

REACTIONS (4)
  - Dysphonia [Not Recovered/Not Resolved]
  - Bronchospasm [Recovered/Resolved]
  - Intentional underdose [Unknown]
  - Drug dose omission [Unknown]

NARRATIVE: CASE EVENT DATE: 2007
